FAERS Safety Report 5851139-5 (Version None)
Quarter: 2008Q3

REPORT INFORMATION
  Report Type: 
  Country: None (occurrence: None)
  Receive Date: 20080820
  Receipt Date: 20080820
  Transmission Date: 20090109
  Serious: Yes (Other)
  Sender: FDA-Public Use
  Company Number: B0533267A

PATIENT
  Sex: Male

DRUGS (14)
  1. PAXIL [Suspect]
     Indication: DRUG USE FOR UNKNOWN INDICATION
     Dosage: 10MG PER DAY
     Route: 048
  2. DEPAS [Concomitant]
     Route: 048
  3. FLUVOXAMINE MALEATE [Concomitant]
     Route: 048
  4. LEXOTAN [Concomitant]
     Route: 048
  5. LULLAN [Concomitant]
     Route: 048
  6. DIAZEPAM [Concomitant]
     Route: 048
  7. GAMMA ORYZANOL [Concomitant]
     Route: 048
  8. MEDIPEACE [Concomitant]
     Route: 048
  9. DOMPERIDONE [Concomitant]
     Route: 048
  10. UNKNOWN MEDICATION [Concomitant]
     Route: 048
  11. UNKNOWN DRUG [Concomitant]
     Route: 048
  12. SEPAZON [Concomitant]
     Route: 048
  13. RISPERDAL [Concomitant]
     Route: 048
  14. VEGETAMIN A [Concomitant]
     Route: 048

REACTIONS (7)
  - BRADYKINESIA [None]
  - CONSTIPATION [None]
  - DIARRHOEA [None]
  - HUNGER [None]
  - HYPERHIDROSIS [None]
  - PARKINSONISM [None]
  - SOMNOLENCE [None]
